FAERS Safety Report 9012292 (Version 1)
Quarter: 2012Q4

REPORT INFORMATION
  Report Type: Spontaneous
  Country: US (occurrence: None)
  Receive Date: 20121231
  Receipt Date: 20121231
  Transmission Date: 20130627
  Serious: Yes (Other)
  Sender: FDA-Public Use
  Company Number: KAD201212-000539

PATIENT

DRUGS (2)
  1. TOPOTECAN (TOPOTECAN) [Suspect]
     Dosage: 3 mg/me2 per day, with subsequent doses targeted to total systemic exposure of 100+20 ng h/mL
  2. CY (CY) [Suspect]
     Dosage: 750 mg/me2 per day

REACTIONS (1)
  - Gastrointestinal toxicity [None]
